FAERS Safety Report 6050667-X (Version None)
Quarter: 2009Q1

REPORT INFORMATION
  Report Type: 
  Country: None (occurrence: None)
  Receive Date: 20090126
  Receipt Date: 20090119
  Transmission Date: 20090719
  Serious: Yes (Other)
  Sender: FDA-Public Use
  Company Number: US-ELI_LILLY_AND_COMPANY-US200901003203

PATIENT
  Sex: Female

DRUGS (6)
  1. HUMULIN N [Suspect]
     Indication: DIABETES MELLITUS
     Dates: start: 20040101
  2. GLYBURIDE [Concomitant]
  3. ESTROGENIC SUBSTANCE [Concomitant]
  4. AMLODIPINE [Concomitant]
  5. LORAZEPAM [Concomitant]
  6. HYDROCODONE BITARTRATE [Concomitant]

REACTIONS (4)
  - DEPOSIT EYE [None]
  - EYE HAEMORRHAGE [None]
  - HEADACHE [None]
  - VISION BLURRED [None]
